FAERS Safety Report 10729419 (Version 2)
Quarter: 2015Q2

REPORT INFORMATION
  Report Type: Spontaneous
  Country: US (occurrence: US)
  Receive Date: 20150122
  Receipt Date: 20150429
  Transmission Date: 20150821
  Serious: Yes (Death, Hospitalization, Other)
  Sender: FDA-Public Use
  Company Number: US-PFIZER INC-2015020784

PATIENT
  Age: 82 Year
  Sex: Male

DRUGS (6)
  1. NEXIUM [Concomitant]
     Active Substance: ESOMEPRAZOLE MAGNESIUM
     Dosage: UNK
  2. ASPIRIN. [Concomitant]
     Active Substance: ASPIRIN
     Dosage: UNK
  3. REVATIO [Suspect]
     Active Substance: SILDENAFIL CITRATE
     Indication: PULMONARY HYPERTENSION
     Dosage: UNK
     Dates: start: 201407
  4. AVODART [Concomitant]
     Active Substance: DUTASTERIDE
     Dosage: UNK
  5. FUROSEMIDE. [Concomitant]
     Active Substance: FUROSEMIDE
     Dosage: UNK
  6. BABY ASPIRIN [Concomitant]
     Active Substance: ASPIRIN
     Dosage: UNK

REACTIONS (5)
  - Loss of consciousness [Unknown]
  - Pulmonary oedema [Unknown]
  - Dyspnoea [Unknown]
  - Death [Fatal]
  - Syncope [Unknown]

NARRATIVE: CASE EVENT DATE: 20150419
